FAERS Safety Report 6433087-5 (Version None)
Quarter: 2009Q4

REPORT INFORMATION
  Report Type: 
  Country: None (occurrence: None)
  Receive Date: 20091105
  Receipt Date: 20091027
  Transmission Date: 20100525
  Serious: Yes (Death)
  Sender: FDA-Public Use
  Company Number: 2009AL006863

PATIENT
  Age: 31 Year
  Sex: Female

DRUGS (1)
  1. FLUOXETINE [Suspect]

REACTIONS (10)
  - ANGIOPATHY [None]
  - BLOOD PRESSURE IMMEASURABLE [None]
  - CONVULSION [None]
  - DRUG TOXICITY [None]
  - ELECTROMECHANICAL DISSOCIATION [None]
  - HEART RATE DECREASED [None]
  - PULMONARY CONGESTION [None]
  - RESPIRATION ABNORMAL [None]
  - RESUSCITATION [None]
  - URINARY RETENTION [None]
